FAERS Safety Report 6695819-0 (Version None)
Quarter: 2010Q2

REPORT INFORMATION
  Report Type: 
  Country: None (occurrence: None)
  Receive Date: 20100421
  Receipt Date: 20100408
  Transmission Date: 20101027
  Serious: Yes (Life-Threatening, Hospitalization, Other)
  Sender: FDA-Public Use
  Company Number: 201004AGG00927

PATIENT
  Age: 86 Year
  Sex: Female

DRUGS (12)
  1. TIROFIBAN HYDROCHLORIDE  (AGGRASTAT (TIROFIBAN HCL) ) [Suspect]
     Indication: PREOPERATIVE CARE
     Dosage: (DAILY DOSE IS INTRAVENOUS)
     Route: 042
     Dates: start: 20100128, end: 20100202
  2. SERETIDE /01420901/ [Concomitant]
  3. ALBUTEROL [Concomitant]
  4. ALLOPURINOL [Concomitant]
  5. MERCK-CARBOCYSTEINE [Concomitant]
  6. CLOPIDOGREL BISULFATE [Concomitant]
  7. LISINOPRIL [Concomitant]
  8. SIMVASTATIN [Concomitant]
  9. TIOTROPIUM BROMIDE [Concomitant]
  10. ACETAMINOPHEN [Concomitant]
  11. ASPIRIN /00002703/ [Concomitant]
  12. FINASTERIDE [Concomitant]

REACTIONS (5)
  - EPISTAXIS [None]
  - HAEMATOMA [None]
  - RECTAL HAEMORRHAGE [None]
  - STRIDOR [None]
  - THROMBOCYTOPENIA [None]
